FAERS Safety Report 7928111-4 (Version None)
Quarter: 2011Q4

REPORT INFORMATION
  Report Type: 
  Country: None (occurrence: None)
  Receive Date: 20111118
  Receipt Date: 20111109
  Transmission Date: 20120403
  Serious: Yes (Hospitalization, Other)
  Sender: FDA-Public Use
  Company Number: US-BAYER-2011-057796

PATIENT
  Age: 22 Year
  Sex: Female
  Weight: 60 kg

DRUGS (5)
  1. EFFEXOR [Concomitant]
  2. ATIVAN [Concomitant]
     Indication: PANIC ATTACK
  3. YAZ [Suspect]
     Dosage: UNK
     Dates: start: 20090501, end: 20100101
  4. YAZ [Suspect]
     Dosage: UNK
     Dates: start: 20100524, end: 20100801
  5. YAZ [Suspect]
     Indication: ORAL CONTRACEPTION
     Dosage: UNK
     Dates: start: 20060731, end: 20080601

REACTIONS (4)
  - PAIN [None]
  - CHOLECYSTECTOMY [None]
  - CHOLELITHIASIS [None]
  - INJURY [None]
